FAERS Safety Report 6839782-8 (Version None)
Quarter: 2010Q3

REPORT INFORMATION
  Report Type: 
  Country: None (occurrence: None)
  Receive Date: 20100708
  Receipt Date: 20100624
  Transmission Date: 20110219
  Serious: Yes (Life-Threatening)
  Sender: FDA-Public Use
  Company Number: 632236

PATIENT
  Age: 3 Year
  Sex: Male

DRUGS (7)
  1. PHENYTOIN [Suspect]
     Indication: STATUS EPILEPTICUS
     Dosage: 270 MG MILLIGRAM(S),
     Dates: start: 20100612
  2. CEFTRIAXONE [Concomitant]
  3. (DIAZEP) [Concomitant]
  4. (EPILIM) [Concomitant]
  5. LORAZEPAM [Concomitant]
  6. (PARACETAMOL) [Concomitant]
  7. (PARALDEHYDE) [Concomitant]

REACTIONS (1)
  - ANAPHYLACTIC REACTION [None]
